FAERS Safety Report 9374553 (Version 1)
Quarter: 2013Q2

REPORT INFORMATION
  Report Type: Spontaneous
  Country: US (occurrence: US)
  Receive Date: 20130628
  Receipt Date: 20130628
  Transmission Date: 20140414
  Serious: No
  Sender: FDA-Public Use
  Company Number: US-009507513-1306USA009938

PATIENT
  Age: 39 Year
  Sex: Female
  Weight: 57.14 kg

DRUGS (1)
  1. IMPLANON [Suspect]
     Indication: CONTRACEPTION
     Dosage: 1 DF; 1 ROD UPTO 3 YEARS
     Route: 059
     Dates: start: 20120809

REACTIONS (2)
  - Unintended pregnancy [Unknown]
  - Amenorrhoea [Unknown]
